FAERS Safety Report 5230511-0 (Version None)
Quarter: 2007Q1

REPORT INFORMATION
  Report Type: 
  Country: None (occurrence: None)
  Receive Date: 20070202
  Receipt Date: 20070125
  Transmission Date: 20070707
  Serious: Yes (Hospitalization)
  Sender: FDA-Public Use
  Company Number: E2020-00876-SPO-FR

PATIENT
  Age: 85 Year
  Sex: Female

DRUGS (4)
  1. ARICEPT [Suspect]
     Indication: DEMENTIA ALZHEIMER'S TYPE
     Dosage: ORAL
     Route: 048
     Dates: end: 20070101
  2. ATENOLOL [Suspect]
     Indication: DRUG USE FOR UNKNOWN INDICATION
     Dosage: ORAL
     Route: 048
     Dates: end: 20070101
  3. POTASSIUM CHLORIDE [Concomitant]
  4. PREVISCAN (FLUINDIONE) [Concomitant]

REACTIONS (4)
  - BRADYCARDIA [None]
  - DRUG INTERACTION [None]
  - FALL [None]
  - LOSS OF CONSCIOUSNESS [None]
